FAERS Safety Report 17125689 (Version 2)
Quarter: 2019Q4

REPORT INFORMATION
  Report Type: Spontaneous
  Country: IT (occurrence: IT)
  Receive Date: 20191208
  Receipt Date: 20191231
  Transmission Date: 20200122
  Serious: Yes (Hospitalization, Other)
  Sender: FDA-Public Use
  Company Number: NVSC2019IT059628

PATIENT
  Age: 21 Year
  Sex: Male

DRUGS (1)
  1. FINGOLIMOD. [Suspect]
     Active Substance: FINGOLIMOD
     Indication: RELAPSING-REMITTING MULTIPLE SCLEROSIS
     Dosage: UNK
     Route: 065
     Dates: start: 20150730

REACTIONS (15)
  - Paralysis [Unknown]
  - Gait disturbance [Unknown]
  - Visuospatial deficit [Unknown]
  - Multiple sclerosis relapse [Unknown]
  - Apathy [Unknown]
  - Balance disorder [Unknown]
  - Dysgraphia [Unknown]
  - Learning disorder [Recovering/Resolving]
  - Psychotic symptom [Recovering/Resolving]
  - Nystagmus [Unknown]
  - Impulsive behaviour [Recovering/Resolving]
  - Diplopia [Unknown]
  - Irritability [Unknown]
  - Executive dysfunction [Recovering/Resolving]
  - Mutism [Recovering/Resolving]

NARRATIVE: CASE EVENT DATE: 201803
